FAERS Safety Report 6140325-5 (Version None)
Quarter: 2009Q2

REPORT INFORMATION
  Report Type: 
  Country: None (occurrence: None)
  Receive Date: 20090401
  Receipt Date: 20090320
  Transmission Date: 20091009
  Serious: Yes (Other)
  Sender: FDA-Public Use
  Company Number: FR-ELI_LILLY_AND_COMPANY-FR200903005052

PATIENT
  Sex: Female

DRUGS (3)
  1. ZYPREXA [Suspect]
     Indication: ANXIETY DISORDER
     Dosage: 5 MG, DAILY (1/D)
     Route: 048
     Dates: start: 20081218, end: 20090109
  2. CANNABIS [Concomitant]
     Dosage: 1 D/F, UNK
     Dates: start: 20081229, end: 20081229
  3. LITHIUM CARBONATE [Concomitant]
     Dosage: 500 MG, DAILY (1/D)
     Dates: start: 20081210

REACTIONS (6)
  - ANXIETY [None]
  - DEREALISATION [None]
  - FEELING ABNORMAL [None]
  - METAMORPHOPSIA [None]
  - SEDATION [None]
  - SOCIAL PROBLEM [None]
